FAERS Safety Report 4341376-3 (Version None)
Quarter: 2004Q2

REPORT INFORMATION
  Report Type: 
  Country: None (occurrence: None)
  Receive Date: 20040414
  Receipt Date: 20040330
  Transmission Date: 20050107
  Serious: Yes (Death, Other)
  Sender: FDA-Public Use
  Company Number: A-US2004-05348

PATIENT
  Age: 1 Year
  Sex: Female

DRUGS (23)
  1. TRACLEER [Suspect]
     Indication: PULMONARY HYPERTENSION
     Dosage: 15.6 MG, BID; ORAL , 15.6 MG, QD; ORAL
     Route: 048
     Dates: start: 20031219, end: 20040111
  2. TRACLEER [Suspect]
     Indication: PULMONARY HYPERTENSION
     Dosage: 15.6 MG, BID; ORAL , 15.6 MG, QD; ORAL
     Route: 048
     Dates: start: 20040112, end: 20040117
  3. ANTIBIOTICS [Concomitant]
  4. OXYGEN [Concomitant]
  5. NITRIC OXIDE [Concomitant]
  6. CAPTOPRIL [Concomitant]
  7. FUROSEMIDE [Concomitant]
  8. FLOLAN [Concomitant]
  9. DOPAMINE HCL [Concomitant]
  10. MILRINONE [Concomitant]
  11. ESMOLOL [Concomitant]
  12. CIPROFLOXACIN [Concomitant]
  13. TOBRAMYCIN [Concomitant]
  14. FLAGYL [Concomitant]
  15. VANCOMYCIN [Concomitant]
  16. AMBISOME [Concomitant]
  17. HEPARIN [Concomitant]
  18. BOTOX (BOTULINUM TOXIN TYPE A) [Concomitant]
  19. BLOOD CELLS, PACKED HUMAN (BLOOD CELLS, PACKED HUMAN) [Concomitant]
  20. BENADRYL [Concomitant]
  21. HALDOL [Concomitant]
  22. CHLORAL HYDRATE [Concomitant]
  23. URSODIOL (URSODEOXYCHOLIC ACID) [Concomitant]

REACTIONS (19)
  - AGITATION [None]
  - ANAEMIA [None]
  - BILIRUBIN CONJUGATED INCREASED [None]
  - BLOOD BILIRUBIN INCREASED [None]
  - CARDIOVASCULAR DISORDER [None]
  - CONDITION AGGRAVATED [None]
  - DYSKINESIA [None]
  - FAECAL OCCULT BLOOD POSITIVE [None]
  - GAMMA-GLUTAMYLTRANSFERASE INCREASED [None]
  - GENERAL PHYSICAL HEALTH DETERIORATION [None]
  - GINGIVAL BLEEDING [None]
  - HYPOPERFUSION [None]
  - HYPOTENSION [None]
  - MULTI-ORGAN FAILURE [None]
  - MULTIPLE-DRUG RESISTANCE [None]
  - PULMONARY HYPERTENSION [None]
  - RESPIRATORY DISTRESS [None]
  - SEPSIS [None]
  - SUPRAVENTRICULAR TACHYCARDIA [None]
